FAERS Safety Report 8894594 (Version 1)
Quarter: 2012Q4

REPORT INFORMATION
  Report Type: 
  Country: GB (occurrence: GB)
  Receive Date: 20121108
  Receipt Date: 20121108
  Transmission Date: 20130627
  Serious: Yes (Other)
  Sender: FDA-Public Use
  Company Number: GB-ASTELLAS-2012US010777

PATIENT
  Sex: Female
  Weight: 136 kg

DRUGS (2)
  1. AMBISOME [Suspect]
     Indication: CANDIDIASIS
     Dosage: 3 mg/kg, Unknown/D
     Route: 065
  2. AMBISOME [Suspect]
     Dosage: UNK
     Route: 042

REACTIONS (2)
  - Drug ineffective [Unknown]
  - Medication error [Unknown]
